FAERS Safety Report 7851293-X (Version None)
Quarter: 2011Q4

REPORT INFORMATION
  Report Type: 
  Country: None (occurrence: None)
  Receive Date: 20111026
  Receipt Date: 20111025
  Transmission Date: 20120403
  Serious: Yes (Hospitalization)
  Sender: FDA-Public Use
  Company Number: IT-SANOFI-AVENTIS-2011SA065348

PATIENT
  Age: 96 Year
  Sex: Female

DRUGS (7)
  1. TICLID [Concomitant]
     Route: 065
  2. LEVOTHYROXINE SODIUM [Concomitant]
     Route: 065
  3. SERTRALINE HYDROCHLORIDE [Concomitant]
     Route: 065
  4. NITRO-DUR [Concomitant]
     Route: 065
  5. PANTOPRAZOLE SODIUM [Concomitant]
     Route: 065
  6. MINIAS [Concomitant]
     Route: 065
  7. LASIX [Suspect]
     Route: 065
     Dates: start: 20110906, end: 20110910

REACTIONS (2)
  - RENAL FAILURE [None]
  - TROPONIN I INCREASED [None]
